FAERS Safety Report 9704236 (Version 2)
Quarter: 2013Q4

REPORT INFORMATION
  Report Type: Report from Study
  Country: CO (occurrence: CO)
  Receive Date: 20131122
  Receipt Date: 20131128
  Transmission Date: 20140711
  Serious: Yes (Hospitalization)
  Sender: FDA-Public Use
  Company Number: CO-SA-2013SA118156

PATIENT
  Age: 62 Year
  Sex: Female

DRUGS (2)
  1. LANTUS [Suspect]
     Indication: DIABETES MELLITUS
     Dosage: DOSE:28 UNIT(S)
     Route: 058
     Dates: start: 201309
  2. APIDRA [Suspect]
     Indication: DIABETES MELLITUS
     Dosage: DOSAGE: 4 UNITS AM, 5 UNITS PM, 4 UNITS PM
     Route: 058
     Dates: start: 201309

REACTIONS (5)
  - Renal failure [Recovered/Resolved]
  - Hypoglycaemia [Recovered/Resolved]
  - Dizziness [Recovered/Resolved]
  - Chills [Recovered/Resolved]
  - Hyperhidrosis [Recovered/Resolved]
